FAERS Safety Report 12210982 (Version 2)
Quarter: 2016Q2

REPORT INFORMATION
  Report Type: Spontaneous
  Country: IT (occurrence: IT)
  Receive Date: 20160325
  Receipt Date: 20160506
  Transmission Date: 20160815
  Serious: Yes (Death, Other)
  Sender: FDA-Public Use
  Company Number: IT-ASTELLAS-2016US010514

PATIENT
  Age: 61 Year
  Sex: Female

DRUGS (1)
  1. ADVAGRAF [Suspect]
     Active Substance: TACROLIMUS
     Indication: RENAL TRANSPLANT
     Dosage: UNK UNK, UNKNOWN FREQ.
     Route: 065

REACTIONS (8)
  - Stenotrophomonas infection [Unknown]
  - Pneumonia [Unknown]
  - Anastomotic haemorrhage [Unknown]
  - Shock haemorrhagic [Fatal]
  - Urinary anastomotic leak [Unknown]
  - Post procedural infection [Unknown]
  - Escherichia bacteraemia [Unknown]
  - Device occlusion [Unknown]
